FAERS Safety Report 21254832 (Version 2)
Quarter: 2022Q4

REPORT INFORMATION
  Report Type: Spontaneous
  Country: FR (occurrence: FR)
  Receive Date: 20220825
  Receipt Date: 20221006
  Transmission Date: 20230112
  Serious: Yes (Other)
  Sender: FDA-Public Use
  Company Number: FR-AMGEN-FRASP2022143039

PATIENT
  Age: 49 Year
  Sex: Male

DRUGS (2)
  1. XGEVA [Suspect]
     Active Substance: DENOSUMAB
     Indication: Renal cancer
     Dosage: UNK
     Route: 058
  2. SUNITINIB [Concomitant]
     Active Substance: SUNITINIB
     Dosage: UNK
     Route: 048

REACTIONS (5)
  - Jaw fracture [Unknown]
  - Osteonecrosis of jaw [Unknown]
  - Malnutrition [Recovered/Resolved]
  - Impaired healing [Unknown]
  - Infection [Recovered/Resolved]
